FAERS Safety Report 14424478 (Version 7)
Quarter: 2022Q4

REPORT INFORMATION
  Report Type: Spontaneous
  Country: FR (occurrence: FR)
  Receive Date: 20180123
  Receipt Date: 20221207
  Transmission Date: 20230113
  Serious: Yes (Other)
  Sender: FDA-Public Use
  Company Number: FR-EMA-DD-20180102-SROYP-145733

PATIENT
  Age: 70 Year
  Sex: Male

DRUGS (10)
  1. VORICONAZOLE [Suspect]
     Active Substance: VORICONAZOLE
     Indication: Scedosporium infection
     Dosage: 200 MG, BID
     Route: 065
  2. VORICONAZOLE [Suspect]
     Active Substance: VORICONAZOLE
     Indication: Osteomyelitis
     Dosage: 800 MG, BID (LOADING(PROGRESSIVE DOSE
     Route: 065
  3. VORICONAZOLE [Suspect]
     Active Substance: VORICONAZOLE
     Indication: Arthritis infective
     Dosage: 200 MG, BID (400 MILLIGRAM QD)
     Route: 065
  4. VORICONAZOLE [Suspect]
     Active Substance: VORICONAZOLE
     Dosage: 400 MILLIGRAM, BID, 800 MILLIGRAM, QD(LOADING DOSE))
     Route: 065
  5. TERBINAFINE [Suspect]
     Active Substance: TERBINAFINE
     Indication: Arthritis infective
     Dosage: UNK UNK, Q2D
     Route: 065
  6. TERBINAFINE [Suspect]
     Active Substance: TERBINAFINE
     Indication: Osteomyelitis
     Dosage: 500 MILLIGRAM, BID,(1000 MILLIGRAM, QD
     Route: 065
  7. TERBINAFINE [Suspect]
     Active Substance: TERBINAFINE
     Indication: Scedosporium infection
     Dosage: UNK
     Route: 065
  8. MILTEFOSINE [Suspect]
     Active Substance: MILTEFOSINE
     Indication: Scedosporium infection
     Dosage: 50 MILLIGRAM, TID (150 MG, QD
     Route: 065
  9. CEFTRIAXONE [Concomitant]
     Active Substance: CEFTRIAXONE
     Indication: Staphylococcus test positive
     Dosage: 3 GRAM, QD
     Route: 065
  10. CEFTRIAXONE [Concomitant]
     Active Substance: CEFTRIAXONE
     Indication: Staphylococcal infection

REACTIONS (11)
  - Squamous cell carcinoma of skin [Unknown]
  - Photosensitivity reaction [Recovered/Resolved]
  - Asthenia [Recovered/Resolved]
  - Visual impairment [Recovered/Resolved]
  - Drug level decreased [Unknown]
  - Disease recurrence [Recovered/Resolved]
  - Treatment failure [Unknown]
  - Product use issue [Recovered/Resolved]
  - Nausea [Recovered/Resolved]
  - Drug effective for unapproved indication [Unknown]
  - Off label use [Recovered/Resolved]
